FAERS Safety Report 4743312-4 (Version None)
Quarter: 2005Q3

REPORT INFORMATION
  Report Type: 
  Country: None (occurrence: None)
  Receive Date: 20050809
  Receipt Date: 20050726
  Transmission Date: 20060218
  Serious: Yes (Other)
  Sender: FDA-Public Use
  Company Number: US-2005-004540

PATIENT
  Age: 32 Year
  Sex: Female
  Weight: 98.6 kg

DRUGS (7)
  1. YASMIN [Suspect]
     Indication: ORAL CONTRACEPTION
     Dosage: 1 TAB (S), 1X/DAY, ORAL
     Route: 048
     Dates: start: 20041101
  2. GLUCOPHAGE [Concomitant]
  3. ZOLOFT [Concomitant]
  4. MULTIVITAMINS (RETINOL, PANTHENOL) [Concomitant]
  5. FOLIC ACID [Concomitant]
  6. ASCORBIC ACID [Concomitant]
  7. CRANBERRY [Concomitant]

REACTIONS (8)
  - ASPARTATE AMINOTRANSFERASE INCREASED [None]
  - BLOOD ALKALINE PHOSPHATASE INCREASED [None]
  - GASTROOESOPHAGEAL REFLUX DISEASE [None]
  - HEPATIC STEATOSIS [None]
  - HEPATOMEGALY [None]
  - METRORRHAGIA [None]
  - NAUSEA [None]
  - PANNICULITIS [None]
